FAERS Safety Report 4352587-5 (Version None)
Quarter: 2004Q2

REPORT INFORMATION
  Report Type: 
  Country: None (occurrence: None)
  Receive Date: 20040504
  Receipt Date: 20040423
  Transmission Date: 20050107
  Serious: Yes (Life-Threatening, Hospitalization, Disabling)
  Sender: FDA-Public Use
  Company Number: NL-JNJFOC-20040303089

PATIENT
  Sex: Female

DRUGS (6)
  1. CORDIUM [Suspect]
     Indication: SINUS RHYTHM
     Route: 049
     Dates: start: 20040121, end: 20040209
  2. CARVEDILOL [Interacting]
     Indication: SINUS RHYTHM
     Route: 049
  3. DIGOXIN [Concomitant]
     Indication: SINUS RHYTHM
  4. WARFARIN POTASSIUM [Concomitant]
  5. FUROSEMIDE [Concomitant]
  6. SENNA LEAF [Concomitant]
     Indication: CONSTIPATION

REACTIONS (10)
  - ADAMS-STOKES SYNDROME [None]
  - CARDIOMEGALY [None]
  - DISSEMINATED INTRAVASCULAR COAGULATION [None]
  - ELECTROCARDIOGRAM QT PROLONGED [None]
  - LOSS OF CONSCIOUSNESS [None]
  - REFUSAL OF TREATMENT BY PATIENT [None]
  - SINUS BRADYCARDIA [None]
  - SUPRAVENTRICULAR EXTRASYSTOLES [None]
  - VENTRICULAR ARRHYTHMIA [None]
  - VENTRICULAR FIBRILLATION [None]
